FAERS Safety Report 15485983 (Version 1)
Quarter: 2018Q4

REPORT INFORMATION
  Report Type: Spontaneous
  Country: FR (occurrence: FR)
  Receive Date: 20181011
  Receipt Date: 20181011
  Transmission Date: 20190205
  Serious: Yes (Hospitalization)
  Sender: FDA-Public Use
  Company Number: PHHY2018FR119347

PATIENT
  Age: 85 Year
  Sex: Female
  Weight: 82 kg

DRUGS (2)
  1. PARACETAMOL [Concomitant]
     Active Substance: ACETAMINOPHEN
     Indication: PRODUCT USED FOR UNKNOWN INDICATION
     Dosage: 3 G, UNK
     Route: 048
  2. ZOLPIDEM [Suspect]
     Active Substance: ZOLPIDEM\ZOLPIDEM TARTRATE
     Indication: PRODUCT USED FOR UNKNOWN INDICATION
     Dosage: 10 ?G/L, UNK
     Route: 048

REACTIONS (3)
  - Respiratory acidosis [Unknown]
  - Poisoning deliberate [Unknown]
  - Coma [Recovering/Resolving]

NARRATIVE: CASE EVENT DATE: 20180824
